FAERS Safety Report 17659313 (Version 1)
Quarter: 2020Q2

REPORT INFORMATION
  Report Type: Spontaneous
  Country: US (occurrence: US)
  Receive Date: 20200413
  Receipt Date: 20200413
  Transmission Date: 20200713
  Serious: No
  Sender: FDA-Public Use
  Company Number: US-BION-008407

PATIENT
  Age: 30 Year
  Sex: Male
  Weight: 107 kg

DRUGS (1)
  1. ALEVE [Suspect]
     Active Substance: NAPROXEN SODIUM
     Indication: PAIN
     Dosage: 2 EVERY 2-4 HOURS AND THEN INCREASED TO 4
     Route: 048

REACTIONS (4)
  - Therapeutic product effect delayed [Not Recovered/Not Resolved]
  - Taste disorder [Unknown]
  - Product physical consistency issue [Unknown]
  - Overdose [Not Recovered/Not Resolved]
